FAERS Safety Report 15803450 (Version 1)
Quarter: 2019Q1

REPORT INFORMATION
  Report Type: Spontaneous
  Country: US (occurrence: US)
  Receive Date: 20190108
  Receipt Date: 20190108
  Transmission Date: 20190417
  Serious: No
  Sender: FDA-Public Use
  Company Number: None

PATIENT

DRUGS (1)
  1. INDOMETHACIN SODIUM INDOMETHACIN [Suspect]
     Active Substance: INDOMETHACIN SODIUM

REACTIONS (1)
  - Therapy cessation [None]
